FAERS Safety Report 6115802-3 (Version None)
Quarter: 2009Q1

REPORT INFORMATION
  Report Type: 
  Country: None (occurrence: None)
  Receive Date: 20090313
  Receipt Date: 20090219
  Transmission Date: 20090719
  Serious: No
  Sender: FDA-Public Use
  Company Number: US-ABBOTT-09P-163-0558432-00

PATIENT
  Sex: Male
  Weight: 104.42 kg

DRUGS (8)
  1. HUMIRA [Suspect]
     Indication: CROHN'S DISEASE
     Route: 058
     Dates: start: 20071117
  2. HUMIRA [Suspect]
  3. PENTASA [Concomitant]
     Indication: CROHN'S DISEASE
     Route: 048
  4. ENTECORT [Concomitant]
     Indication: CROHN'S DISEASE
  5. PREDNISONE [Concomitant]
     Indication: CROHN'S DISEASE
  6. QUESTRAN [Concomitant]
     Indication: CROHN'S DISEASE
  7. ACIPHEX [Concomitant]
     Indication: CROHN'S DISEASE
  8. MICARDIS [Concomitant]
     Indication: HYPERTENSION

REACTIONS (3)
  - FALL [None]
  - HUMERUS FRACTURE [None]
  - NAUSEA [None]
